FAERS Safety Report 23234511 (Version 1)
Quarter: 2023Q4

REPORT INFORMATION
  Report Type: Spontaneous
  Country: US (occurrence: US)
  Receive Date: 20231128
  Receipt Date: 20231128
  Transmission Date: 20240109
  Serious: Yes (Other)
  Sender: FDA-Public Use
  Company Number: US-CIPLA LTD.-2023US07315

PATIENT

DRUGS (1)
  1. ALENDRONATE [Suspect]
     Active Substance: ALENDRONATE SODIUM
     Indication: Osteopenia
     Dosage: UNK
     Route: 065

REACTIONS (2)
  - Ulna fracture [Recovering/Resolving]
  - Atypical fracture [Recovering/Resolving]
